FAERS Safety Report 19801666 (Version 1)
Quarter: 2021Q3

REPORT INFORMATION
  Report Type: Spontaneous
  Country: US (occurrence: US)
  Receive Date: 20210908
  Receipt Date: 20210908
  Transmission Date: 20211014
  Serious: Yes (Other)
  Sender: FDA-Public Use
  Company Number: US-SA-2021SA292903

PATIENT
  Age: 40 Year
  Sex: Female

DRUGS (1)
  1. AUBAGIO [Suspect]
     Active Substance: TERIFLUNOMIDE
     Dosage: 14 MG
     Route: 065
     Dates: start: 2018

REACTIONS (5)
  - Asthma [Unknown]
  - COVID-19 pneumonia [Unknown]
  - Haemoptysis [Unknown]
  - Dyspnoea [Unknown]
  - Pleuritic pain [Unknown]

NARRATIVE: CASE EVENT DATE: 2020
